FAERS Safety Report 12010599 (Version 1)
Quarter: 2016Q1

REPORT INFORMATION
  Report Type: Spontaneous
  Country: US (occurrence: None)
  Receive Date: 20160204
  Receipt Date: 20160204
  Transmission Date: 20160526
  Serious: No
  Sender: FDA-Public Use
  Company Number: None

PATIENT
  Age: 42 Year
  Sex: Female
  Weight: 93.44 kg

DRUGS (8)
  1. INSULIN PEN 70/30 [Concomitant]
  2. CYMBALTA [Concomitant]
     Active Substance: DULOXETINE HYDROCHLORIDE
  3. ABILIFY [Concomitant]
     Active Substance: ARIPIPRAZOLE
  4. METFORMIN [Concomitant]
     Active Substance: METFORMIN HYDROCHLORIDE
  5. TRAZODONE [Concomitant]
     Active Substance: TRAZODONE HYDROCHLORIDE
  6. JARDIANCE [Suspect]
     Active Substance: EMPAGLIFLOZIN
     Indication: TYPE 2 DIABETES MELLITUS
     Route: 048
     Dates: start: 20160118, end: 20160127
  7. LOVASTATIN. [Concomitant]
     Active Substance: LOVASTATIN
  8. TYLENOL [Concomitant]
     Active Substance: ACETAMINOPHEN

REACTIONS (11)
  - Upper respiratory tract infection [None]
  - Dehydration [None]
  - Blood glucose fluctuation [None]
  - Feeling hot [None]
  - Blood glucose increased [None]
  - Malaise [None]
  - Glucose urine present [None]
  - Migraine [None]
  - Cough [None]
  - Blood triglycerides increased [None]
  - Heart rate increased [None]

NARRATIVE: CASE EVENT DATE: 20160127
